FAERS Safety Report 11875909 (Version 1)
Quarter: 2015Q4

REPORT INFORMATION
  Report Type: Spontaneous
  Country: FR (occurrence: FR)
  Receive Date: 20151229
  Receipt Date: 20151229
  Transmission Date: 20160305
  Serious: Yes (Life-Threatening, Hospitalization)
  Sender: FDA-Public Use
  Company Number: FR-TEVA-621133ISR

PATIENT
  Age: 42 Year
  Sex: Female

DRUGS (2)
  1. ANDROCUR [Suspect]
     Active Substance: CYPROTERONE ACETATE
     Indication: POLYCYSTIC OVARIES
     Route: 048
     Dates: start: 2000, end: 2015
  2. ESTREVA [Suspect]
     Active Substance: ESTRADIOL
     Indication: POLYCYSTIC OVARIES
     Dates: start: 2000, end: 2015

REACTIONS (1)
  - Meningioma [Recovered/Resolved with Sequelae]

NARRATIVE: CASE EVENT DATE: 2015
